FAERS Safety Report 5546587-7 (Version None)
Quarter: 2007Q4

REPORT INFORMATION
  Report Type: 
  Country: None (occurrence: None)
  Receive Date: 20071211
  Receipt Date: 20071205
  Transmission Date: 20080405
  Serious: Yes (Death, Hospitalization)
  Sender: FDA-Public Use
  Company Number: IT-MERCK-0712ITA00006

PATIENT
  Age: 45 Year
  Sex: Female

DRUGS (3)
  1. SINGULAIR [Suspect]
     Indication: ASTHMA
     Route: 048
     Dates: start: 20000101
  2. NUTRITIONAL SUPPLEMENTS [Suspect]
     Indication: WEIGHT DECREASED
     Route: 048
     Dates: start: 20051101
  3. NUTRITIONAL SUPPLEMENTS [Concomitant]
     Route: 065

REACTIONS (6)
  - COMA [None]
  - DRUG INTERACTION [None]
  - HEPATIC FAILURE [None]
  - HEPATOCELLULAR DAMAGE [None]
  - PULMONARY CONGESTION [None]
  - RENAL FAILURE [None]
